FAERS Safety Report 21385509 (Version 1)
Quarter: 2022Q3

REPORT INFORMATION
  Report Type: Spontaneous
  Country: US (occurrence: None)
  Receive Date: 20220928
  Receipt Date: 20220928
  Transmission Date: 20221027
  Serious: No
  Sender: FDA-Public Use
  Company Number: US-USAntibiotics-000046

PATIENT
  Sex: Female

DRUGS (3)
  1. AUGMENTIN [Suspect]
     Active Substance: AMOXICILLIN\CLAVULANATE POTASSIUM
     Indication: Product used for unknown indication
  2. COTELLIC [Concomitant]
     Active Substance: COBIMETINIB
     Indication: Product used for unknown indication
  3. ZELBORAF [Concomitant]
     Active Substance: VEMURAFENIB
     Indication: Product used for unknown indication

REACTIONS (1)
  - Abdominal pain [Unknown]
